FAERS Safety Report 5484489-5 (Version None)
Quarter: 2007Q4

REPORT INFORMATION
  Report Type: 
  Country: None (occurrence: None)
  Receive Date: 20071009
  Receipt Date: 20070928
  Transmission Date: 20080405
  Serious: Yes (Other)
  Sender: FDA-Public Use
  Company Number: CHPA2007US09480

PATIENT
  Age: 39 Year
  Sex: Female
  Weight: 81.6 kg

DRUGS (1)
  1. VAGISTAT-1 [Suspect]
     Indication: VULVOVAGINAL MYCOTIC INFECTION
     Dosage: 300 MG, ONCE/SINGLE, VAGINAL
     Route: 067
     Dates: start: 20070904, end: 20070904

REACTIONS (2)
  - FOREIGN BODY TRAUMA [None]
  - WRONG TECHNIQUE IN DRUG USAGE PROCESS [None]
